FAERS Safety Report 25565110 (Version 1)
Quarter: 2025Q3

REPORT INFORMATION
  Report Type: Spontaneous
  Country: GB (occurrence: GB)
  Receive Date: 20250716
  Receipt Date: 20250716
  Transmission Date: 20251021
  Serious: Yes (Hospitalization, Other)
  Sender: RANBAXY
  Company Number: GB-SUN PHARMACEUTICAL INDUSTRIES LTD-2025R1-515187

PATIENT
  Age: 15 Year
  Sex: Female

DRUGS (1)
  1. DUAC [Suspect]
     Active Substance: BENZOYL PEROXIDE\CLINDAMYCIN PHOSPHATE
     Indication: Acne
     Route: 065

REACTIONS (6)
  - Dystonia [Recovered/Resolved]
  - Somnolence [Recovered/Resolved]
  - Erythema [Unknown]
  - Swelling face [Unknown]
  - Swelling [Unknown]
  - Lip swelling [Unknown]
